FAERS Safety Report 6985137-5 (Version None)
Quarter: 2010Q3

REPORT INFORMATION
  Report Type: 
  Country: None (occurrence: None)
  Receive Date: 20100915
  Receipt Date: 20100908
  Transmission Date: 20110219
  Serious: Yes (Hospitalization)
  Sender: FDA-Public Use
  Company Number: US-ROCHE-683018

PATIENT
  Sex: Female
  Weight: 97.3 kg

DRUGS (7)
  1. TOCILIZUMAB [Suspect]
     Indication: RHEUMATOID ARTHRITIS
     Dosage: LAST DOSE PRIOR TO SAE: 25 JAN 2010
     Route: 042
     Dates: start: 20091228
  2. PREDNISONE [Concomitant]
  3. METHOTREXATE [Concomitant]
  4. NORVASC [Concomitant]
  5. ACCUPRIL [Concomitant]
  6. ASPIRIN [Concomitant]
  7. HYDROCHLOROTHIAZIDE [Concomitant]

REACTIONS (3)
  - DIZZINESS [None]
  - SYNCOPE [None]
  - TREMOR [None]
